FAERS Safety Report 20297607 (Version 2)
Quarter: 2022Q1

REPORT INFORMATION
  Report Type: Spontaneous
  Country: US (occurrence: None)
  Receive Date: 20220105
  Receipt Date: 20220124
  Transmission Date: 20220424
  Serious: No
  Sender: FDA-Public Use
  Company Number: 2021A889978

PATIENT
  Sex: Male
  Weight: 81.6 kg

DRUGS (1)
  1. CALQUENCE [Suspect]
     Active Substance: ACALABRUTINIB
     Indication: Waldenstrom^s macroglobulinaemia
     Route: 048

REACTIONS (2)
  - Gait disturbance [Unknown]
  - Fatigue [Not Recovered/Not Resolved]
